FAERS Safety Report 5916022-5 (Version None)
Quarter: 2008Q4

REPORT INFORMATION
  Report Type: 
  Country: None (occurrence: None)
  Receive Date: 20081013
  Receipt Date: 20081009
  Transmission Date: 20090506
  Serious: Yes (Death)
  Sender: FDA-Public Use
  Company Number: DE-JNJFOC-20081002074

PATIENT
  Age: 6 Decade
  Sex: Male

DRUGS (2)
  1. REOPRO [Suspect]
     Indication: MYOCARDIAL INFARCTION
     Route: 022
  2. REOPRO [Suspect]
     Route: 042

REACTIONS (1)
  - CARDIOGENIC SHOCK [None]
